FAERS Safety Report 21873026 (Version 1)
Quarter: 2023Q1

REPORT INFORMATION
  Report Type: Spontaneous
  Country: US (occurrence: None)
  Receive Date: 20230115
  Receipt Date: 20230115
  Transmission Date: 20230417
  Serious: Yes (Other)
  Sender: FDA-Public Use
  Company Number: None

PATIENT
  Age: 44 Year
  Sex: Female
  Weight: 94.5 kg

DRUGS (4)
  1. TERBINAFINE [Suspect]
     Active Substance: TERBINAFINE
     Indication: Onychomycosis
     Dates: start: 20221212, end: 20221224
  2. LEVOTHYROXINE [Concomitant]
     Active Substance: LEVOTHYROXINE
  3. ametriptoline [Concomitant]
  4. SPIRO [Concomitant]

REACTIONS (4)
  - Urticaria [None]
  - Skin exfoliation [None]
  - Rash [None]
  - Rash macular [None]

NARRATIVE: CASE EVENT DATE: 20221224
